FAERS Safety Report 9250241 (Version 3)
Quarter: 2013Q4

REPORT INFORMATION
  Report Type: Spontaneous
  Country: US (occurrence: US)
  Receive Date: 20130424
  Receipt Date: 20131015
  Transmission Date: 20140711
  Serious: Yes (Hospitalization, Disabling)
  Sender: FDA-Public Use
  Company Number: US-ASTRAZENECA-2013SE27276

PATIENT
  Age: 46 Year
  Sex: Female

DRUGS (11)
  1. NEXIUM [Suspect]
     Indication: GASTROOESOPHAGEAL REFLUX DISEASE
     Route: 048
     Dates: start: 2005, end: 2011
  2. NEXIUM [Suspect]
     Indication: GASTROOESOPHAGEAL REFLUX DISEASE
     Route: 048
     Dates: start: 20100401
  3. PRILOSEC [Suspect]
     Indication: GASTROOESOPHAGEAL REFLUX DISEASE
     Route: 048
  4. PRILOSEC [Suspect]
     Indication: GASTROOESOPHAGEAL REFLUX DISEASE
     Route: 048
     Dates: start: 1999, end: 2001
  5. ZANTAC [Concomitant]
     Dates: start: 2001, end: 2002
  6. PREVACID [Concomitant]
     Indication: GASTROOESOPHAGEAL REFLUX DISEASE
     Dates: start: 2002, end: 2005
  7. LOVASTATIN [Concomitant]
  8. OXYCODONE [Concomitant]
  9. BABY ASPIRIN [Concomitant]
  10. FUROSEMIDE [Concomitant]
     Dates: start: 20090911
  11. SINGULAIR [Concomitant]
     Dates: start: 20091211

REACTIONS (18)
  - Arthropathy [Unknown]
  - Gallbladder disorder [Unknown]
  - Nerve injury [Unknown]
  - Osteoporosis [Unknown]
  - Bone disorder [Unknown]
  - Patella fracture [Unknown]
  - Back disorder [Unknown]
  - Carpal tunnel syndrome [Unknown]
  - Type 2 diabetes mellitus [Unknown]
  - Arthritis [Unknown]
  - Spinal osteoarthritis [Unknown]
  - Intervertebral disc displacement [Unknown]
  - Intervertebral disc degeneration [Unknown]
  - Diabetic neuropathy [Unknown]
  - Scoliosis [Unknown]
  - Ankle fracture [Unknown]
  - Fall [Unknown]
  - Road traffic accident [Unknown]
